FAERS Safety Report 13395766 (Version 3)
Quarter: 2017Q4

REPORT INFORMATION
  Report Type: Report from Study
  Country: GB (occurrence: GB)
  Receive Date: 20170403
  Receipt Date: 20171109
  Transmission Date: 20180320
  Serious: Yes (Death, Hospitalization, Other)
  Sender: FDA-Public Use
  Company Number: GB-AMGEN-GBRSL2017049298

PATIENT
  Age: 59 Year
  Sex: Female

DRUGS (1)
  1. ARANESP [Suspect]
     Active Substance: DARBEPOETIN ALFA
     Indication: PRODUCT USED FOR UNKNOWN INDICATION
     Dosage: 80MCG+80MCG
     Route: 065

REACTIONS (4)
  - Leg amputation [Unknown]
  - Foot amputation [Unknown]
  - Death [Fatal]
  - Toe amputation [Unknown]

NARRATIVE: CASE EVENT DATE: 201612
